FAERS Safety Report 22162123 (Version 1)
Quarter: 2023Q1

REPORT INFORMATION
  Report Type: Spontaneous
  Country: TW (occurrence: TW)
  Receive Date: 20230331
  Receipt Date: 20230331
  Transmission Date: 20230418
  Serious: Yes (Other)
  Sender: FDA-Public Use
  Company Number: TW-MYLANLABS-2023M1033727

PATIENT
  Age: 80 Year
  Sex: Male

DRUGS (4)
  1. XANAX [Suspect]
     Active Substance: ALPRAZOLAM
     Indication: Sleep disorder
     Dosage: 0.75 MILLIGRAM, HS (3 TABLET)
     Route: 048
  2. XANAX [Suspect]
     Active Substance: ALPRAZOLAM
     Dosage: 0.625 MILLIGRAM (2.5 TABLET)
     Route: 048
  3. XANAX [Suspect]
     Active Substance: ALPRAZOLAM
     Dosage: 0.375 MILLIGRAM (1.5 TABLET)
     Route: 048
  4. XANAX [Suspect]
     Active Substance: ALPRAZOLAM
     Dosage: 0.5 MILLIGRAM, HS (2 TABLET)
     Route: 048

REACTIONS (10)
  - Dystonia [Unknown]
  - Insomnia [Unknown]
  - Autonomic nervous system imbalance [Unknown]
  - Hiccups [Unknown]
  - Flatulence [Unknown]
  - Muscle twitching [Unknown]
  - Fatigue [Unknown]
  - Libido increased [Unknown]
  - Drug ineffective [Unknown]
  - Off label use [Unknown]
